FAERS Safety Report 8175270-7 (Version None)
Quarter: 2012Q1

REPORT INFORMATION
  Report Type: 
  Country: None (occurrence: None)
  Receive Date: 20120229
  Receipt Date: 20120214
  Transmission Date: 20120608
  Serious: Yes (Other)
  Sender: FDA-Public Use
  Company Number: CHPA2012US002058

PATIENT
  Age: 28 Year
  Sex: Male

DRUGS (2)
  1. EXCEDRIN EXTRA STRENGTH TABLETS [Suspect]
     Indication: HEADACHE
     Dosage: 2 DF, ONCE/SINGLE
     Route: 048
     Dates: start: 20111231, end: 20111231
  2. PENICILLIN [Suspect]
     Indication: TOOTH EXTRACTION
     Dosage: UNK DF, UNK
     Dates: start: 20111201

REACTIONS (6)
  - HYPERSENSITIVITY [None]
  - OEDEMA PERIPHERAL [None]
  - RASH MACULAR [None]
  - SWELLING [None]
  - URTICARIA [None]
  - THROAT IRRITATION [None]
